FAERS Safety Report 5678282-8 (Version None)
Quarter: 2008Q1

REPORT INFORMATION
  Report Type: 
  Country: None (occurrence: None)
  Receive Date: 20080319
  Receipt Date: 20080307
  Transmission Date: 20080703
  Serious: No
  Sender: FDA-Public Use
  Company Number: 2008-173283-NL

PATIENT
  Sex: Female

DRUGS (1)
  1. MARVELON [Suspect]
     Indication: CONTRACEPTION
     Dosage: DF
     Dates: start: 19920101, end: 19930101

REACTIONS (2)
  - PROLACTINOMA [None]
  - VISUAL DISTURBANCE [None]
